FAERS Safety Report 6937801-1 (Version None)
Quarter: 2010Q3

REPORT INFORMATION
  Report Type: 
  Country: None (occurrence: None)
  Receive Date: 20100820
  Receipt Date: 20100820
  Transmission Date: 20110219
  Serious: No
  Sender: FDA-Public Use
  Company Number: None

PATIENT

DRUGS (1)
  1. MIRENA [Suspect]

REACTIONS (9)
  - AFFECTIVE DISORDER [None]
  - DEVICE EXPULSION [None]
  - DISCOMFORT [None]
  - DYSPAREUNIA [None]
  - ECONOMIC PROBLEM [None]
  - HAEMORRHAGE [None]
  - INJURY [None]
  - MENORRHAGIA [None]
  - PREGNANCY [None]
